FAERS Safety Report 8555889-1 (Version None)
Quarter: 2012Q3

REPORT INFORMATION
  Report Type: 
  Country: None (occurrence: None)
  Receive Date: 20120801
  Receipt Date: 20120725
  Transmission Date: 20120928
  Serious: No
  Sender: FDA-Public Use
  Company Number: US-BIOGENIDEC-2012BI027888

PATIENT
  Sex: Female

DRUGS (3)
  1. NARCOTIC [Concomitant]
     Indication: PREMEDICATION
  2. TYSABRI [Suspect]
     Indication: MULTIPLE SCLEROSIS
     Route: 042
     Dates: start: 20100517
  3. AMPHETAMINES [Concomitant]
     Indication: FATIGUE

REACTIONS (9)
  - ABASIA [None]
  - FATIGUE [None]
  - HEADACHE [None]
  - FALL [None]
  - CENTRAL NERVOUS SYSTEM LESION [None]
  - HYPERTENSION [None]
  - MALAISE [None]
  - MYOPIA [None]
  - PAIN [None]
